FAERS Safety Report 6028904-7 (Version None)
Quarter: 2008Q4

REPORT INFORMATION
  Report Type: 
  Country: None (occurrence: None)
  Receive Date: 20081229
  Receipt Date: 20081218
  Transmission Date: 20090506
  Serious: Yes (Hospitalization)
  Sender: FDA-Public Use
  Company Number: 1000003251

PATIENT
  Age: 83 Year
  Sex: Female
  Weight: 53 kg

DRUGS (7)
  1. MEMANTINE HCL [Suspect]
     Indication: DEMENTIA ALZHEIMER'S TYPE
     Dosage: 20 MG (20 MG, 1 IN 1 D), ORAL
     Route: 048
     Dates: start: 20050915, end: 20081215
  2. ISOSORBIDE DINITRATE [Concomitant]
  3. PRAVASTATIN SODIUM [Concomitant]
  4. LANSOPRAZOLE [Concomitant]
  5. ALENDRONATE SODIUM [Concomitant]
  6. FAMOTIDINE [Concomitant]
  7. MAGNESIUM OXIDE [Concomitant]

REACTIONS (6)
  - CHEYNE-STOKES RESPIRATION [None]
  - DYSPHAGIA [None]
  - EMBOLIC CEREBRAL INFARCTION [None]
  - FALL [None]
  - HEART RATE INCREASED [None]
  - OEDEMA [None]
